FAERS Safety Report 16073637 (Version 2)
Quarter: 2019Q1

REPORT INFORMATION
  Report Type: Spontaneous
  Country: US (occurrence: US)
  Receive Date: 20190314
  Receipt Date: 20190327
  Transmission Date: 20190418
  Serious: Yes (Hospitalization)
  Sender: FDA-Public Use
  Company Number: US-ASTRAZENECA-2019SE39388

PATIENT
  Age: 25469 Day
  Sex: Female

DRUGS (1)
  1. SYMBICORT [Suspect]
     Active Substance: BUDESONIDE\FORMOTEROL FUMARATE DIHYDRATE
     Dosage: 160/4.5, 1 PUFF TWICE A DAY,
     Route: 055
     Dates: start: 20190221

REACTIONS (6)
  - Pneumonia [Unknown]
  - Intentional device misuse [Unknown]
  - Product dose omission [Not Recovered/Not Resolved]
  - Device malfunction [Unknown]
  - Off label use [Unknown]
  - Device issue [Unknown]

NARRATIVE: CASE EVENT DATE: 20190225
